FAERS Safety Report 5678491-8 (Version None)
Quarter: 2008Q1

REPORT INFORMATION
  Report Type: 
  Country: None (occurrence: None)
  Receive Date: 20080325
  Receipt Date: 20080320
  Transmission Date: 20080703
  Serious: Yes (Other)
  Sender: FDA-Public Use
  Company Number: PL-BRISTOL-MYERS SQUIBB COMPANY-14122584

PATIENT
  Age: 21 Year
  Sex: Male

DRUGS (5)
  1. ENTECAVIR [Suspect]
     Indication: HEPATITIS B
     Route: 048
     Dates: start: 20070911
  2. ENTECAVIR [Suspect]
     Indication: HEPATIC FAILURE
     Route: 048
     Dates: start: 20070911
  3. SPIRONOLACTONE [Concomitant]
     Dates: start: 20070601
  4. LACTULOSE [Concomitant]
     Dates: start: 20070601
  5. ORNITHINE [Concomitant]
     Dates: start: 20070601

REACTIONS (1)
  - BLOOD BICARBONATE DECREASED [None]
